FAERS Safety Report 8153594-7 (Version None)
Quarter: 2012Q1

REPORT INFORMATION
  Report Type: 
  Country: None (occurrence: None)
  Receive Date: 20120216
  Receipt Date: 20120216
  Transmission Date: 20120608
  Serious: Yes (Other)
  Sender: FDA-Public Use
  Company Number: None

PATIENT
  Age: 43 Year
  Sex: Male
  Weight: 104.5 kg

DRUGS (3)
  1. LEVAQUIN [Suspect]
     Indication: INFECTION
     Dosage: 500 MG 14 PILLS ORAL
     Route: 048
     Dates: start: 20040309, end: 20040323
  2. TRIAMCINOLONE [Concomitant]
  3. PREDNISONE [Concomitant]

REACTIONS (1)
  - TENDON RUPTURE [None]
